FAERS Safety Report 5645819-4 (Version None)
Quarter: 2008Q1

REPORT INFORMATION
  Report Type: 
  Country: None (occurrence: None)
  Receive Date: 20080229
  Receipt Date: 20080221
  Transmission Date: 20080703
  Serious: Yes (Hospitalization)
  Sender: FDA-Public Use
  Company Number: PHEH2007US07885

PATIENT
  Age: 50 Year
  Sex: Female

DRUGS (7)
  1. ZELNORM [Suspect]
     Indication: IRRITABLE BOWEL SYNDROME
     Dosage: 6 MG, BID
     Route: 048
     Dates: start: 20050601, end: 20070401
  2. HYDROCHLOROTHIAZIDE [Concomitant]
     Indication: HYPERTENSION
     Dosage: 25MG, QD
     Route: 048
  3. HYDROCHLOROTHIAZIDE [Concomitant]
     Dates: start: 19950101
  4. LASIX [Concomitant]
     Dosage: 20 MG, QD
     Route: 048
  5. POTASSIUM CHLORIDE [Concomitant]
     Dosage: 20 MEQ, QD
     Route: 048
  6. NEXIUM [Concomitant]
     Dosage: 40 MG, QD
     Route: 048
  7. ZANAFLEX [Concomitant]
     Dosage: 4 MG, QHS
     Route: 048

REACTIONS (5)
  - AMNESIA [None]
  - HEADACHE [None]
  - HYPOAESTHESIA [None]
  - TRANSIENT ISCHAEMIC ATTACK [None]
  - VISION BLURRED [None]
